FAERS Safety Report 23805190 (Version 1)
Quarter: 2024Q2

REPORT INFORMATION
  Report Type: Spontaneous
  Country: DE (occurrence: DE)
  Receive Date: 20240502
  Receipt Date: 20240502
  Transmission Date: 20240716
  Serious: Yes (Other)
  Sender: FDA-Public Use
  Company Number: None

PATIENT
  Age: 48 Year
  Sex: Male
  Weight: 76 kg

DRUGS (27)
  1. IBUPROFEN [Suspect]
     Active Substance: IBUPROFEN
     Indication: Lung disorder
     Dosage: SEVERAL TIMES A DAY
     Route: 065
     Dates: start: 20230401, end: 20240306
  2. IBUPROFEN [Suspect]
     Active Substance: IBUPROFEN
     Indication: Myalgia
  3. IBUPROFEN [Suspect]
     Active Substance: IBUPROFEN
     Indication: Inflammation
  4. IBUPROFEN [Suspect]
     Active Substance: IBUPROFEN
     Indication: Tendon pain
  5. IBUPROFEN [Suspect]
     Active Substance: IBUPROFEN
     Indication: Spinal pain
  6. IBUPROFEN [Suspect]
     Active Substance: IBUPROFEN
     Indication: Bone pain
  7. IBUPROFEN [Suspect]
     Active Substance: IBUPROFEN
     Indication: Arthralgia
  8. IBUPROFEN [Suspect]
     Active Substance: IBUPROFEN
     Indication: Neuralgia
  9. IBUPROFEN [Suspect]
     Active Substance: IBUPROFEN
     Indication: Pain
  10. METAMIZOLE [Suspect]
     Active Substance: METAMIZOLE
     Indication: Tendon pain
     Dosage: SEVERAL TIMES A DAY.
     Route: 065
     Dates: start: 20230401, end: 20240306
  11. METAMIZOLE [Suspect]
     Active Substance: METAMIZOLE
     Indication: Bone pain
  12. METAMIZOLE [Suspect]
     Active Substance: METAMIZOLE
     Indication: Inflammation
  13. METAMIZOLE [Suspect]
     Active Substance: METAMIZOLE
     Indication: Spinal pain
  14. METAMIZOLE [Suspect]
     Active Substance: METAMIZOLE
     Indication: Lung disorder
  15. METAMIZOLE [Suspect]
     Active Substance: METAMIZOLE
     Indication: Arthralgia
  16. METAMIZOLE [Suspect]
     Active Substance: METAMIZOLE
     Indication: Myalgia
  17. METAMIZOLE [Suspect]
     Active Substance: METAMIZOLE
     Indication: Pain
  18. METAMIZOLE [Suspect]
     Active Substance: METAMIZOLE
     Indication: Neuralgia
  19. TRAMADOL [Suspect]
     Active Substance: TRAMADOL\TRAMADOL HYDROCHLORIDE
     Indication: Inflammation
     Dosage: SEVERAL TIMES A DAY
     Route: 048
     Dates: start: 20230401, end: 20240306
  20. TRAMADOL [Suspect]
     Active Substance: TRAMADOL\TRAMADOL HYDROCHLORIDE
     Indication: Tendon pain
  21. TRAMADOL [Suspect]
     Active Substance: TRAMADOL\TRAMADOL HYDROCHLORIDE
     Indication: Pain
  22. TRAMADOL [Suspect]
     Active Substance: TRAMADOL\TRAMADOL HYDROCHLORIDE
     Indication: Neuralgia
  23. TRAMADOL [Suspect]
     Active Substance: TRAMADOL\TRAMADOL HYDROCHLORIDE
     Indication: Arthralgia
  24. TRAMADOL [Suspect]
     Active Substance: TRAMADOL\TRAMADOL HYDROCHLORIDE
     Indication: Lung disorder
  25. TRAMADOL [Suspect]
     Active Substance: TRAMADOL\TRAMADOL HYDROCHLORIDE
     Indication: Bone pain
  26. TRAMADOL [Suspect]
     Active Substance: TRAMADOL\TRAMADOL HYDROCHLORIDE
     Indication: Myalgia
  27. TRAMADOL [Suspect]
     Active Substance: TRAMADOL\TRAMADOL HYDROCHLORIDE
     Indication: Spinal pain

REACTIONS (28)
  - Neuropathy peripheral [Recovered/Resolved with Sequelae]
  - Inflammation [Not Recovered/Not Resolved]
  - Lung disorder [Recovered/Resolved with Sequelae]
  - Disturbance in attention [Recovered/Resolved with Sequelae]
  - Nervous system disorder [Recovered/Resolved with Sequelae]
  - Pain in jaw [Unknown]
  - Asthenia [Unknown]
  - Nerve injury [Recovered/Resolved with Sequelae]
  - Malaise [Recovered/Resolved with Sequelae]
  - Pain [Recovered/Resolved with Sequelae]
  - Visual impairment [Unknown]
  - Dyspnoea [Recovered/Resolved with Sequelae]
  - Lymphadenopathy [Recovered/Resolved with Sequelae]
  - Pain in extremity [Recovered/Resolved with Sequelae]
  - Hypotonia [Recovered/Resolved with Sequelae]
  - Bone pain [Recovered/Resolved with Sequelae]
  - Asthma [Recovered/Resolved with Sequelae]
  - Headache [Recovered/Resolved with Sequelae]
  - Sleep disorder [Recovered/Resolved with Sequelae]
  - Apathy [Unknown]
  - Neuralgia [Unknown]
  - Muscular weakness [Recovered/Resolved with Sequelae]
  - Memory impairment [Recovered/Resolved with Sequelae]
  - Allergy to vaccine [Recovered/Resolved with Sequelae]
  - Thinking abnormal [Unknown]
  - Epistaxis [Recovered/Resolved with Sequelae]
  - Arthralgia [Recovered/Resolved with Sequelae]
  - Myalgia [Recovered/Resolved with Sequelae]

NARRATIVE: CASE EVENT DATE: 20230401
